FAERS Safety Report 12615826 (Version 3)
Quarter: 2017Q2

REPORT INFORMATION
  Report Type: Spontaneous
  Country: DE (occurrence: DE)
  Receive Date: 20160802
  Receipt Date: 20170526
  Transmission Date: 20170830
  Serious: Yes (Other)
  Sender: FDA-Public Use
  Company Number: DE-OTSUKA-2016_018187

PATIENT
  Age: 29 Year
  Sex: Male

DRUGS (16)
  1. JINARC [Suspect]
     Active Substance: TOLVAPTAN
     Dosage: 45 MG, UNK (IN MORNING)
     Route: 065
     Dates: start: 20160407, end: 20160503
  2. JINARC [Suspect]
     Active Substance: TOLVAPTAN
     Dosage: 15 MG, UNK (IN EVENNG)
     Route: 065
     Dates: start: 20160407, end: 20160503
  3. JINARC [Suspect]
     Active Substance: TOLVAPTAN
     Dosage: 60 MG, UNK (IN MORNING)
     Route: 065
     Dates: start: 20160503, end: 20160609
  4. JINARC [Suspect]
     Active Substance: TOLVAPTAN
     Dosage: 30 MG, UNK (IN EVENING)
     Route: 065
  5. JINARC [Suspect]
     Active Substance: TOLVAPTAN
     Dosage: 15 MG, UNK (IN EVENING)
     Route: 065
     Dates: start: 20160906
  6. JINARC [Suspect]
     Active Substance: TOLVAPTAN
     Dosage: 30 MG, UNK (IN EVENING), FROM 3-4 WEEKS AGO TILL 9 DAYS AGO
     Route: 065
  7. JINARC [Suspect]
     Active Substance: TOLVAPTAN
     Dosage: 30 MG, UNK (IN EVENING)
     Route: 065
     Dates: start: 20160503, end: 20160609
  8. JINARC [Suspect]
     Active Substance: TOLVAPTAN
     Dosage: 90 MG, UNK (IN MORNING)
     Route: 065
     Dates: start: 20160609, end: 20160721
  9. JINARC [Suspect]
     Active Substance: TOLVAPTAN
     Dosage: 45 MG, UNK (IN MORNING)
     Route: 065
     Dates: start: 20160906
  10. JINARC [Suspect]
     Active Substance: TOLVAPTAN
     Indication: CONGENITAL CYSTIC KIDNEY DISEASE
     Dosage: UNK
     Route: 065
     Dates: start: 20160607
  11. JINARC [Suspect]
     Active Substance: TOLVAPTAN
     Dosage: 30 MG, UNK (IN EVENING)
     Route: 065
     Dates: start: 20160609, end: 20160721
  12. JINARC [Suspect]
     Active Substance: TOLVAPTAN
     Dosage: UNK, FROM 9 DAYS AGO
     Route: 065
  13. JINARC [Suspect]
     Active Substance: TOLVAPTAN
     Dosage: 60 MG, UNK (IN MORNING)
     Route: 065
  14. JINARC [Suspect]
     Active Substance: TOLVAPTAN
     Dosage: 60 MG, UNK (IN MORNING)
     Route: 065
  15. JINARC [Suspect]
     Active Substance: TOLVAPTAN
     Dosage: 90 MG, UNK (IN MORNING), FROM 3-4 WEEKS AGO TILL 9 DAYS AGO
     Route: 065
  16. JINARC [Suspect]
     Active Substance: TOLVAPTAN
     Dosage: 30 MG, UNK (IN EVENING)
     Route: 065

REACTIONS (5)
  - Ligament operation [Unknown]
  - Laboratory test abnormal [Not Recovered/Not Resolved]
  - C-reactive protein increased [Unknown]
  - Therapy cessation [Unknown]
  - Transaminases increased [Recovered/Resolved]

NARRATIVE: CASE EVENT DATE: 201606
